FAERS Safety Report 11983091 (Version 16)
Quarter: 2017Q2

REPORT INFORMATION
  Report Type: Spontaneous
  Country: US (occurrence: US)
  Receive Date: 20160201
  Receipt Date: 20170511
  Transmission Date: 20170829
  Serious: Yes (Other)
  Sender: FDA-Public Use
  Company Number: US-PFIZER INC-2016049805

PATIENT
  Age: 45 Year
  Sex: Female
  Weight: 58 kg

DRUGS (10)
  1. IBRANCE [Suspect]
     Active Substance: PALBOCICLIB
     Dosage: 100 MG, CYCLIC (DAYS 1-21 Q 28 DAYS)
     Route: 048
     Dates: start: 20160111
  2. IBRANCE [Suspect]
     Active Substance: PALBOCICLIB
     Indication: BREAST CANCER METASTATIC
     Dosage: 125 MG, CYCLIC (D1-D21 Q28 D)
     Route: 048
     Dates: start: 201601, end: 2016
  3. IBRANCE [Suspect]
     Active Substance: PALBOCICLIB
     Dosage: 100 MG, CYCLIC (DAYS 1-21 Q 28 DAYS)
     Route: 048
     Dates: start: 20160111
  4. LETROZOLE. [Suspect]
     Active Substance: LETROZOLE
     Dosage: UNK UNK, DAILY
  5. IBRANCE [Suspect]
     Active Substance: PALBOCICLIB
     Dosage: 100 MG, CYCLIC (DAYS 1-21 Q 28 DAYS)
     Route: 048
     Dates: start: 20160111
  6. IBRANCE [Suspect]
     Active Substance: PALBOCICLIB
     Dosage: 100 MG, CYCLIC(D1-21 Q28 DAYS)
     Route: 048
     Dates: start: 20160111
  7. IBRANCE [Suspect]
     Active Substance: PALBOCICLIB
     Dosage: 125 MG, CYCLIC (DAYS 1-21 Q28 DAYS)
     Route: 048
     Dates: start: 20160111, end: 20160331
  8. IBRANCE [Suspect]
     Active Substance: PALBOCICLIB
     Dosage: 100 MG, CYCLIC (DAYS 1-21 Q28 DAYS)
     Route: 048
     Dates: start: 2016, end: 2016
  9. IBRANCE [Suspect]
     Active Substance: PALBOCICLIB
     Dosage: 100 MG, CYCLIC (D1-D21 Q28 D)
     Route: 048
     Dates: start: 2016
  10. IBRANCE [Suspect]
     Active Substance: PALBOCICLIB
     Dosage: 100 MG, CYCLIC (D1-D21 Q28 D)
     Route: 048
     Dates: start: 20160404, end: 2016

REACTIONS (29)
  - Neutropenia [Not Recovered/Not Resolved]
  - Rectal haemorrhage [Unknown]
  - Faeces hard [Unknown]
  - Influenza [Recovering/Resolving]
  - Arthralgia [Not Recovered/Not Resolved]
  - Bone pain [Unknown]
  - Dry skin [Not Recovered/Not Resolved]
  - Madarosis [Unknown]
  - Fatigue [Not Recovered/Not Resolved]
  - Constipation [Not Recovered/Not Resolved]
  - Dizziness [Unknown]
  - Neutrophil count decreased [Unknown]
  - Hot flush [Unknown]
  - Night sweats [Unknown]
  - Eye pruritus [Unknown]
  - Eye swelling [Unknown]
  - Skin exfoliation [Unknown]
  - White blood cell count decreased [Recovering/Resolving]
  - Viral upper respiratory tract infection [Not Recovered/Not Resolved]
  - Ocular hyperaemia [Unknown]
  - Alopecia [Unknown]
  - Haematochezia [Recovered/Resolved]
  - Pain in extremity [Unknown]
  - Pruritus generalised [Not Recovered/Not Resolved]
  - Pain in jaw [Unknown]
  - Red blood cell count decreased [Unknown]
  - Neuropathy peripheral [Not Recovered/Not Resolved]
  - Rash [Recovered/Resolved]
  - Diplopia [Unknown]

NARRATIVE: CASE EVENT DATE: 2016
